FAERS Safety Report 10184763 (Version 1)
Quarter: 2014Q2

REPORT INFORMATION
  Report Type: Spontaneous
  Country: US (occurrence: None)
  Receive Date: 20140520
  Receipt Date: 20140520
  Transmission Date: 20141212
  Serious: Yes (Death)
  Sender: FDA-Public Use
  Company Number: None

PATIENT
  Age: 49 Year
  Sex: Male
  Weight: 72.58 kg

DRUGS (2)
  1. CIPROFLOXACN [Suspect]
     Indication: BRONCHITIS
     Dates: start: 20120221, end: 20130224
  2. CIPROFLOXACN [Suspect]
     Dates: start: 20120221, end: 20130224

REACTIONS (1)
  - Death [None]
